FAERS Safety Report 12423092 (Version 1)
Quarter: 2016Q2

REPORT INFORMATION
  Report Type: Spontaneous
  Country: US (occurrence: None)
  Receive Date: 20160531
  Receipt Date: 20160531
  Transmission Date: 20160815
  Serious: No
  Sender: FDA-Public Use
  Company Number: None

PATIENT
  Age: 13 Year
  Sex: Female
  Weight: 79.83 kg

DRUGS (1)
  1. DEPAKOTE [Suspect]
     Active Substance: DIVALPROEX SODIUM
     Indication: DEPRESSION
     Route: 048
     Dates: start: 20141001, end: 20160527

REACTIONS (2)
  - Thyroid disorder [None]
  - Weight increased [None]

NARRATIVE: CASE EVENT DATE: 20160414
